FAERS Safety Report 4302910-2 (Version None)
Quarter: 2004Q1

REPORT INFORMATION
  Report Type: 
  Country: None (occurrence: None)
  Receive Date: 20040223
  Receipt Date: 20040223
  Transmission Date: 20041129
  Serious: Yes (Disabling)
  Sender: FDA-Public Use
  Company Number: None

PATIENT
  Age: 42 Year
  Sex: Female
  Weight: 88.4514 kg

DRUGS (1)
  1. CELEXA [Suspect]
     Indication: DEPRESSION
     Dosage: 20MG DAY ORAL
     Route: 048
     Dates: start: 20001004, end: 20040222

REACTIONS (2)
  - MACULAR DEGENERATION [None]
  - RETINAL HAEMORRHAGE [None]
